FAERS Safety Report 25617871 (Version 2)
Quarter: 2025Q3

REPORT INFORMATION
  Report Type: Spontaneous
  Country: EU (occurrence: EU)
  Receive Date: 20250729
  Receipt Date: 20250808
  Transmission Date: 20251021
  Serious: Yes (Hospitalization, Other)
  Sender: AUROBINDO
  Company Number: EU-EMA-DD-20250717-7482653-123239

PATIENT
  Age: 36 Year
  Sex: Female
  Weight: 70 kg

DRUGS (14)
  1. BUPIVACAINE [Suspect]
     Active Substance: BUPIVACAINE
     Indication: Epidural analgesia
     Route: 008
  2. BUPIVACAINE [Suspect]
     Active Substance: BUPIVACAINE
     Route: 008
  3. BUPIVACAINE [Suspect]
     Active Substance: BUPIVACAINE
     Route: 008
  4. BUPIVACAINE [Suspect]
     Active Substance: BUPIVACAINE
     Route: 008
  5. FENTANYL CITRATE [Suspect]
     Active Substance: FENTANYL CITRATE
     Indication: Epidural analgesia
     Route: 042
  6. FENTANYL CITRATE [Suspect]
     Active Substance: FENTANYL CITRATE
     Route: 042
  7. PROPOFOL [Suspect]
     Active Substance: PROPOFOL
     Indication: Product used for unknown indication
     Route: 042
  8. PROPOFOL [Suspect]
     Active Substance: PROPOFOL
     Route: 065
  9. LIDOCAINE HYDROCHLORIDE [Suspect]
     Active Substance: LIDOCAINE HYDROCHLORIDE
     Indication: Epidural analgesia
     Route: 065
  10. LIDOCAINE HYDROCHLORIDE [Suspect]
     Active Substance: LIDOCAINE HYDROCHLORIDE
     Route: 065
  11. LEVOBUPIVACAINE [Suspect]
     Active Substance: LEVOBUPIVACAINE
     Indication: Epidural analgesia
     Route: 065
  12. SUCCINYLCHOLINE [Suspect]
     Active Substance: SUCCINYLCHOLINE
     Indication: Product used for unknown indication
     Route: 065
  13. SUCCINYLCHOLINE [Suspect]
     Active Substance: SUCCINYLCHOLINE
     Route: 065
  14. SODIUM CHLORIDE [Suspect]
     Active Substance: SODIUM CHLORIDE
     Indication: Product used for unknown indication
     Route: 008

REACTIONS (7)
  - Horner^s syndrome [Recovered/Resolved]
  - Maternal exposure during delivery [Recovered/Resolved]
  - Dyspnoea [Recovered/Resolved]
  - Hypotension [Recovered/Resolved]
  - Sensory disturbance [Recovered/Resolved]
  - Paresis [Recovered/Resolved]
  - Anaesthetic complication [Recovered/Resolved]
